FAERS Safety Report 7660391-5 (Version None)
Quarter: 2011Q3

REPORT INFORMATION
  Report Type: 
  Country: None (occurrence: None)
  Receive Date: 20110805
  Receipt Date: 20110721
  Transmission Date: 20111222
  Serious: Yes (Other)
  Sender: FDA-Public Use
  Company Number: AU-GENENTECH-322483

PATIENT
  Sex: Female

DRUGS (2)
  1. LUCENTIS [Suspect]
     Indication: MACULAR DEGENERATION
     Dosage: 0.05 ML, UNKNOWN
     Route: 031
     Dates: start: 20070801
  2. LUCENTIS [Suspect]
     Dosage: 0.05 ML, UNKNOWN
     Route: 031
     Dates: start: 20101001

REACTIONS (5)
  - RETINAL DETACHMENT [None]
  - VITREOUS FLOATERS [None]
  - EYE INFECTION [None]
  - VISUAL ACUITY REDUCED [None]
  - RETINAL SCAR [None]
